FAERS Safety Report 15249565 (Version 2)
Quarter: 2018Q4

REPORT INFORMATION
  Report Type: Report from Study
  Country: US (occurrence: US)
  Receive Date: 20180807
  Receipt Date: 20181004
  Transmission Date: 20190204
  Serious: No
  Sender: FDA-Public Use
  Company Number: US-PFIZER INC-2018307738

PATIENT
  Age: 17 Year
  Sex: Male
  Weight: 60.7 kg

DRUGS (6)
  1. CAMPTOSAR [Suspect]
     Active Substance: IRINOTECAN HYDROCHLORIDE
     Dosage: 50MG/M2, OVER 90 MINUTES ON DAYS 1-5 OF CYCLES 2 AND 4
     Route: 042
  2. TEMSIROLIMUS. [Suspect]
     Active Substance: TEMSIROLIMUS
     Dosage: 15 MG/M2, OVER 30-60 MINUTES ON DAYS 1, 8, AND 15 OF CYCLES 1-4
     Route: 042
     Dates: start: 20180518
  3. DACTINOMYCIN [Suspect]
     Active Substance: DACTINOMYCIN
     Dosage: 0.05 MG/KG, OVER 1-5 MINUTES ON DAY 1 OF CYCLES 1 AND 3
     Route: 042
     Dates: start: 20180518
  4. CYCLOPHOSPHAMIDE. [Suspect]
     Active Substance: CYCLOPHOSPHAMIDE
     Dosage: 1200 MG/M2, OVER 60 MINUTES ON DAY 1 OF CYCLES 1 AND 3
     Route: 042
     Dates: start: 20180518
  5. VINCRISTINE SULFATE. [Suspect]
     Active Substance: VINCRISTINE SULFATE
     Dosage: 1.5 MG/M2, OVER 1 MINUTE OR INFUSION VIA MINIBAG ON DAYS 1, 8, AND 15 OF CYCLES 1-4
     Route: 042
     Dates: start: 20180518
  6. TEMSIROLIMUS. [Suspect]
     Active Substance: TEMSIROLIMUS
     Dosage: 15 MG/M2, OVER 30-60 MINUTES ON DAYS 1, 8, AND 15 OF CYCLES 1-4
     Route: 042
     Dates: start: 20180704

REACTIONS (1)
  - No adverse event [Unknown]
